FAERS Safety Report 5409057-2 (Version None)
Quarter: 2007Q3

REPORT INFORMATION
  Report Type: 
  Country: None (occurrence: None)
  Receive Date: 20070806
  Receipt Date: 20070723
  Transmission Date: 20080115
  Serious: Yes (Hospitalization)
  Sender: FDA-Public Use
  Company Number: 100#08#2007-02876

PATIENT
  Age: 39 Year
  Sex: Female

DRUGS (10)
  1. TRAMADOL HCL [Suspect]
     Indication: DRUG USE FOR UNKNOWN INDICATION
     Dosage: 150 MG INTRAVENOUS (NOT OTHERWISE SPECIFIED)
     Route: 042
  2. MEPERIDINE HCL [Suspect]
     Indication: PAIN
     Dosage: 25-50 MG
  3. PANTOPRAZOLE SODIUM [Suspect]
     Indication: DRUG USE FOR UNKNOWN INDICATION
     Dosage: 40MG INTRAVENOUS (NOT OTHERWISE SPECIFIED)
  4. CYCLOPHOSPHAMIDE [Suspect]
     Indication: LYMPHOMA
     Dosage: 1000 MG
  5. PREDNISOLONE [Suspect]
     Indication: LYMPHOMA
     Dosage: 100 MG
  6. EPIRUBICIN HYDROCHLORIDE (EPIRUBICIN HYDROCHLORIDE) (EPIRUBICIN HYDROC [Concomitant]
  7. VINCRISTINE SULFATE (VINCRISTINE SULFATE) (VINCRISTINE SULFATE) [Concomitant]
  8. AMOXICILLIN [Concomitant]
  9. CLARITHROMYCIN [Concomitant]
  10. LAMIVUDINE [Concomitant]

REACTIONS (16)
  - ABNORMAL BEHAVIOUR [None]
  - CATATONIA [None]
  - CONFUSIONAL STATE [None]
  - DELIRIUM [None]
  - DEREALISATION [None]
  - DISORIENTATION [None]
  - DISTURBANCE IN ATTENTION [None]
  - DRUG INTERACTION [None]
  - HALLUCINATION, VISUAL [None]
  - IRRITABILITY [None]
  - MOOD ALTERED [None]
  - MUTISM [None]
  - NEGATIVISM [None]
  - POSTURE ABNORMAL [None]
  - RESTLESSNESS [None]
  - STUPOR [None]
